FAERS Safety Report 22974435 (Version 2)
Quarter: 2023Q4

REPORT INFORMATION
  Report Type: Spontaneous
  Country: US (occurrence: None)
  Receive Date: 20230923
  Receipt Date: 20231023
  Transmission Date: 20240110
  Serious: No
  Sender: FDA-Public Use
  Company Number: 2023A212838

PATIENT
  Age: 67 Year
  Sex: Female

DRUGS (3)
  1. TAGRISSO [Suspect]
     Active Substance: OSIMERTINIB
     Route: 048
  2. TAGRISSO [Suspect]
     Active Substance: OSIMERTINIB
     Route: 048
  3. TAGRISSO [Suspect]
     Active Substance: OSIMERTINIB
     Route: 048
     Dates: start: 202303, end: 20230918

REACTIONS (6)
  - Abnormal sensation in eye [Unknown]
  - Dyspepsia [Unknown]
  - Feeling hot [Unknown]
  - Headache [Unknown]
  - Cognitive disorder [Unknown]
  - Punctate keratitis [Recovered/Resolved]

NARRATIVE: CASE EVENT DATE: 20230905
